FAERS Safety Report 19500603 (Version 3)
Quarter: 2021Q4

REPORT INFORMATION
  Report Type: Spontaneous
  Country: US (occurrence: US)
  Receive Date: 20210707
  Receipt Date: 20211011
  Transmission Date: 20220303
  Serious: Yes (Hospitalization, Other)
  Sender: FDA-Public Use
  Company Number: US-PFIZER INC-2021725315

PATIENT
  Age: 63 Year
  Sex: Female

DRUGS (1)
  1. XELJANZ [Suspect]
     Active Substance: TOFACITINIB CITRATE
     Dosage: 5 MG

REACTIONS (10)
  - Injury [Unknown]
  - Fibromyalgia [Unknown]
  - Pain [Unknown]
  - Deafness [Unknown]
  - Rheumatoid arthritis [Unknown]
  - Immune system disorder [Unknown]
  - Malaise [Unknown]
  - Loss of personal independence in daily activities [Unknown]
  - Bone disorder [Unknown]
  - Arthropathy [Unknown]
